FAERS Safety Report 6298879-4 (Version None)
Quarter: 2009Q3

REPORT INFORMATION
  Report Type: 
  Country: None (occurrence: None)
  Receive Date: 20090806
  Receipt Date: 20090728
  Transmission Date: 20100115
  Serious: Yes (Other)
  Sender: FDA-Public Use
  Company Number: GR-BAYER-200926822GPV

PATIENT
  Sex: Male

DRUGS (1)
  1. BETAFERON [Suspect]
     Indication: MULTIPLE SCLEROSIS

REACTIONS (1)
  - MULTIPLE SCLEROSIS [None]
